FAERS Safety Report 26117327 (Version 1)
Quarter: 2025Q4

REPORT INFORMATION
  Report Type: Spontaneous
  Country: EU (occurrence: EU)
  Receive Date: 20251203
  Receipt Date: 20251203
  Transmission Date: 20260117
  Serious: Yes (Other)
  Sender: BRISTOL-MYERS SQUIBB COMPANY
  Company Number: None

PATIENT
  Age: 54 Year
  Sex: Female
  Weight: 98 kg

DRUGS (7)
  1. APIXABAN [Suspect]
     Active Substance: APIXABAN
     Indication: Pulmonary embolism
     Dosage: 20 MG/DAY
     Route: 048
     Dates: start: 20251104, end: 20251113
  2. EZETIMIBE [Suspect]
     Active Substance: EZETIMIBE
     Indication: Dyslipidaemia
     Dosage: 10 MG/DAY
     Route: 048
     Dates: start: 20251106, end: 20251113
  3. ATORVASTATIN [Suspect]
     Active Substance: ATORVASTATIN
     Indication: Dyslipidaemia
     Dosage: 20 MG/DAY
     Route: 048
     Dates: start: 20251106, end: 20251113
  4. IOMERON [Suspect]
     Active Substance: IOMEPROL
     Indication: Computerised tomogram
     Dosage: 1 INJECTION?STRENGTH :  (400 MG IODINE/ML)
     Route: 042
     Dates: start: 20251103, end: 20251103
  5. IOMERON [Suspect]
     Active Substance: IOMEPROL
     Dosage: 1 INJECTION?STRENGTH :  (400 MG IODINE/ML)
     Route: 042
     Dates: start: 20251108, end: 20251108
  6. OZEMPIC [Concomitant]
     Active Substance: SEMAGLUTIDE
     Indication: Obesity
     Dosage: 1 INJECTION
     Route: 058
     Dates: start: 20251109, end: 20251109
  7. METFORMIN PAMOATE [Concomitant]
     Active Substance: METFORMIN PAMOATE
     Indication: Diabetes mellitus
     Dosage: 20 MG/DAY?SCORED
     Route: 048
     Dates: start: 20251106, end: 20251113

REACTIONS (1)
  - Rash maculo-papular [Recovered/Resolved]

NARRATIVE: CASE EVENT DATE: 20251112
